FAERS Safety Report 8899438 (Version 1)
Quarter: 2012Q4

REPORT INFORMATION
  Report Type: 
  Country: US (occurrence: US)
  Receive Date: 20121108
  Receipt Date: 20121108
  Transmission Date: 20130627
  Serious: No
  Sender: FDA-Public Use
  Company Number: US-AMGEN-USASP2012032631

PATIENT
  Sex: Female
  Weight: 117.91 kg

DRUGS (4)
  1. ENBREL [Suspect]
     Indication: RHEUMATOID ARTHRITIS
     Dosage: 50 mg, UNK
  2. PREDNISONE                         /00044702/ [Concomitant]
     Dosage: 1 mg, UNK
  3. FISH OIL [Concomitant]
     Dosage: 1000 mg, UNK
  4. VITAMIN D /00107901/ [Concomitant]
     Dosage: 1000 IU, UNK

REACTIONS (1)
  - Rheumatoid arthritis [Unknown]
